FAERS Safety Report 5838764-2 (Version None)
Quarter: 2008Q3

REPORT INFORMATION
  Report Type: 
  Country: None (occurrence: None)
  Receive Date: 20080808
  Receipt Date: 20080805
  Transmission Date: 20090109
  Serious: Yes (Hospitalization)
  Sender: FDA-Public Use
  Company Number: US-BRISTOL-MYERS SQUIBB COMPANY-14290399

PATIENT
  Age: 56 Year
  Sex: Male
  Weight: 105 kg

DRUGS (8)
  1. QUESTRAN [Suspect]
     Indication: CROHN'S DISEASE
  2. REMICADE [Suspect]
     Indication: CROHN'S DISEASE
     Dosage: 16NOV1999-UNK + 18JAN2001-UNK: 5MG/KG 06AUG2001:10MG/KG LYOPHILIZED POWDER(RECOMBINANT)
     Route: 042
     Dates: start: 19990617
  3. BUDESONIDE [Suspect]
     Indication: CROHN'S DISEASE
  4. IMODIUM [Suspect]
     Indication: CROHN'S DISEASE
  5. PREVACID [Suspect]
     Indication: CROHN'S DISEASE
  6. ADALIMUMAB [Suspect]
     Indication: CROHN'S DISEASE
  7. LOMOTIL [Suspect]
     Indication: CROHN'S DISEASE
  8. ACETAMINOPHEN [Concomitant]
     Dates: start: 20010806

REACTIONS (7)
  - ABDOMINAL PAIN [None]
  - DEHYDRATION [None]
  - DIARRHOEA [None]
  - ELECTROLYTE IMBALANCE [None]
  - INFUSION RELATED REACTION [None]
  - POST PROCEDURAL DISCHARGE [None]
  - RASH [None]
